FAERS Safety Report 10573873 (Version 1)
Quarter: 2014Q4

REPORT INFORMATION
  Report Type: Report from Study
  Country: IN (occurrence: IN)
  Receive Date: 20141110
  Receipt Date: 20141110
  Transmission Date: 20150529
  Serious: Yes (Hospitalization, Other)
  Sender: FDA-Public Use
  Company Number: PHHY2014IN144389

PATIENT
  Age: 70 Year
  Sex: Male
  Weight: 57 kg

DRUGS (4)
  1. UPRISE D3 [Concomitant]
     Indication: VITAMIN D
     Dosage: UNK, QD
     Route: 048
  2. DOLONEX//PIROXICAM [Concomitant]
     Indication: ANALGESIC THERAPY
     Dosage: UNK, QD
     Route: 048
     Dates: start: 20141028
  3. ACLASTA [Suspect]
     Active Substance: ZOLEDRONIC ACID
     Indication: OSTEOPOROSIS
     Dosage: ONCE A YEAR
     Route: 042
     Dates: start: 20140205
  4. NEUROBION PLUS [Concomitant]
     Indication: VITAMIN SUPPLEMENTATION
     Dosage: UNK, QD
     Route: 048
     Dates: start: 20141028

REACTIONS (9)
  - Arthralgia [Unknown]
  - Pain [Recovering/Resolving]
  - Loss of consciousness [Recovered/Resolved]
  - Intervertebral disc space narrowing [Recovering/Resolving]
  - Back pain [Unknown]
  - Hip fracture [Unknown]
  - Osteosclerosis [Unknown]
  - Exostosis [Unknown]
  - Fall [Unknown]

NARRATIVE: CASE EVENT DATE: 20141017
